FAERS Safety Report 8427919-9 (Version None)
Quarter: 2012Q2

REPORT INFORMATION
  Report Type: 
  Country: None (occurrence: None)
  Receive Date: 20120611
  Receipt Date: 20120531
  Transmission Date: 20120825
  Serious: Yes (Hospitalization, Other)
  Sender: FDA-Public Use
  Company Number: US-ASTRAZENECA-2009SE19522

PATIENT
  Age: 50 Year
  Sex: Female

DRUGS (1)
  1. NEXIUM [Suspect]
     Route: 048

REACTIONS (12)
  - PNEUMONIA [None]
  - INFLUENZA LIKE ILLNESS [None]
  - APHAGIA [None]
  - CATARACT [None]
  - DYSPEPSIA [None]
  - NEOPLASM [None]
  - MULTIPLE ALLERGIES [None]
  - DRUG DOSE OMISSION [None]
  - PHARYNGEAL DISORDER [None]
  - VISUAL IMPAIRMENT [None]
  - CHRONIC OBSTRUCTIVE PULMONARY DISEASE [None]
  - LUNG NEOPLASM [None]
